FAERS Safety Report 22369434 (Version 1)
Quarter: 2023Q2

REPORT INFORMATION
  Report Type: Spontaneous
  Country: US (occurrence: US)
  Receive Date: 20230526
  Receipt Date: 20230526
  Transmission Date: 20230721
  Serious: Yes (Life-Threatening, Hospitalization, Other)
  Sender: FDA-Public Use
  Company Number: US-Y-MABS THERAPEUTICS, INC.-SPO2023-US-001219

PATIENT

DRUGS (2)
  1. DANYELZA [Suspect]
     Active Substance: NAXITAMAB-GQGK
     Indication: Product used for unknown indication
     Dosage: CYCLE UNKNOWN, DOSE UNKNOWN
     Route: 042
  2. KETAMINE [Concomitant]
     Active Substance: KETAMINE

REACTIONS (9)
  - Hypotension [Recovered/Resolved]
  - Blood pressure increased [Recovered/Resolved]
  - Unresponsive to stimuli [Recovered/Resolved]
  - Seizure [Recovered/Resolved]
  - Hypoxia [Recovered/Resolved]
  - Pulse absent [Recovered/Resolved]
  - Pneumonia aspiration [Unknown]
  - Cough [Recovered/Resolved]
  - Chest pain [Recovered/Resolved]
